FAERS Safety Report 23621225 (Version 2)
Quarter: 2024Q2

REPORT INFORMATION
  Report Type: Report from Study
  Country: JP (occurrence: JP)
  Receive Date: 20240312
  Receipt Date: 20240516
  Transmission Date: 20240715
  Serious: Yes (Hospitalization, Other)
  Sender: FDA-Public Use
  Company Number: JP-ASTELLAS-2023JP009073

PATIENT
  Age: 85 Year
  Sex: Male
  Weight: 58 kg

DRUGS (6)
  1. ENFORTUMAB VEDOTIN-EJFV [Suspect]
     Active Substance: ENFORTUMAB VEDOTIN-EJFV
     Indication: Metastatic carcinoma of the bladder
     Dosage: UNK UNK, UNKNOWN FREQ.
     Route: 065
  2. ENFORTUMAB VEDOTIN-EJFV [Suspect]
     Active Substance: ENFORTUMAB VEDOTIN-EJFV
     Dosage: 1.25 MG/KG, ONCE WEEKLY, 3 DOSES AND 1 REST
     Route: 041
     Dates: start: 20220222, end: 20220419
  3. ENFORTUMAB VEDOTIN-EJFV [Suspect]
     Active Substance: ENFORTUMAB VEDOTIN-EJFV
     Route: 041
     Dates: start: 20220517, end: 20220524
  4. ENFORTUMAB VEDOTIN-EJFV [Suspect]
     Active Substance: ENFORTUMAB VEDOTIN-EJFV
     Dosage: 1.25 MG/KG, ONCE WEEKLY, 3 DOSES AND 1 REST
     Route: 041
     Dates: start: 20220614, end: 20220628
  5. ALLEGRA [Concomitant]
     Active Substance: FEXOFENADINE HYDROCHLORIDE
     Indication: Skin disorder
     Route: 048
     Dates: start: 20220322, end: 20220628
  6. HEPARINOID [Concomitant]
     Indication: Rash
     Dosage: UNK UNK, UNKNOWN FREQ.
     Route: 065

REACTIONS (7)
  - Neutrophil count decreased [Recovered/Resolved]
  - Neutropenia [Unknown]
  - Eosinophilia [Unknown]
  - Rash [Recovering/Resolving]
  - Taste disorder [Recovered/Resolved]
  - Dysgeusia [Recovered/Resolved]
  - Pruritus [Recovering/Resolving]

NARRATIVE: CASE EVENT DATE: 20220321
